FAERS Safety Report 16052822 (Version 1)
Quarter: 2019Q1

REPORT INFORMATION
  Report Type: Spontaneous
  Country: FR (occurrence: FR)
  Receive Date: 20190308
  Receipt Date: 20190308
  Transmission Date: 20190418
  Serious: Yes (Death)
  Sender: FDA-Public Use
  Company Number: FR-MYLANLABS-2019M1021001

PATIENT
  Age: 29 Year
  Sex: Male
  Weight: 62 kg

DRUGS (4)
  1. CARBOPLATIN. [Suspect]
     Active Substance: CARBOPLATIN
     Indication: BRONCHIAL CARCINOMA
     Dosage: 1380 MILLIGRAM
     Route: 042
     Dates: start: 20180709, end: 20180730
  2. PEMETREXED. [Interacting]
     Active Substance: PEMETREXED
     Indication: BRONCHIAL CARCINOMA
     Dosage: 730 MILLIGRAM, Q21D
     Route: 042
     Dates: start: 20180709, end: 20180730
  3. KETOPROFEN. [Interacting]
     Active Substance: KETOPROFEN
     Indication: PAIN
     Dosage: 200 MILLIGRAM, QD
     Route: 048
     Dates: start: 20180718
  4. METHYLPREDNISOLONE. [Interacting]
     Active Substance: METHYLPREDNISOLONE
     Indication: METASTASES TO CENTRAL NERVOUS SYSTEM
     Dosage: 148 MILLIGRAM, QD
     Route: 048
     Dates: start: 20180626

REACTIONS (4)
  - Lung disorder [Fatal]
  - Sepsis [Fatal]
  - Aplasia [Fatal]
  - Drug interaction [Fatal]

NARRATIVE: CASE EVENT DATE: 20180801
